FAERS Safety Report 24348224 (Version 1)
Quarter: 2024Q3

REPORT INFORMATION
  Report Type: Spontaneous
  Country: US (occurrence: US)
  Receive Date: 20240923
  Receipt Date: 20240923
  Transmission Date: 20241016
  Serious: Yes (Hospitalization, Other)
  Sender: RANBAXY
  Company Number: US-SUN PHARMACEUTICAL INDUSTRIES LTD-2024R1-453793

PATIENT
  Age: 7 Year
  Sex: Male

DRUGS (10)
  1. BACTRIM [Suspect]
     Active Substance: SULFAMETHOXAZOLE\TRIMETHOPRIM
     Indication: Product used for unknown indication
     Route: 065
  2. REFRESH CELLUVISC [Concomitant]
     Active Substance: CARBOXYMETHYLCELLULOSE SODIUM
     Indication: Trichiasis
     Dosage: Q1H
     Route: 047
     Dates: start: 20240322
  3. REFRESH CELLUVISC [Concomitant]
     Active Substance: CARBOXYMETHYLCELLULOSE SODIUM
     Indication: Entropion
  4. REFRESH CELLUVISC [Concomitant]
     Active Substance: CARBOXYMETHYLCELLULOSE SODIUM
     Indication: Stevens-Johnson syndrome
  5. ERYTHROMYCIN [Concomitant]
     Active Substance: ERYTHROMYCIN
     Indication: Trichiasis
     Dosage: 7 GRAM
     Route: 047
     Dates: start: 20240205
  6. ERYTHROMYCIN [Concomitant]
     Active Substance: ERYTHROMYCIN
     Indication: Stevens-Johnson syndrome
     Dosage: 3.5 GRAM
     Route: 047
     Dates: start: 20240408, end: 20240505
  7. RESTASIS [Concomitant]
     Active Substance: CYCLOSPORINE
     Indication: Trichiasis
     Dosage: UNK UNK, BID
     Route: 047
     Dates: start: 20240117
  8. RESTASIS [Concomitant]
     Active Substance: CYCLOSPORINE
     Indication: Entropion
  9. RESTASIS [Concomitant]
     Active Substance: CYCLOSPORINE
     Indication: Stevens-Johnson syndrome
  10. diphenhydramine-Lidocaine [Concomitant]
     Indication: Oral pain
     Dosage: 280 MILLILITER
     Route: 048
     Dates: start: 20240408

REACTIONS (1)
  - Stevens-Johnson syndrome [Unknown]

NARRATIVE: CASE EVENT DATE: 20231126
